FAERS Safety Report 4365916-3 (Version None)
Quarter: 2004Q2

REPORT INFORMATION
  Report Type: 
  Country: None (occurrence: None)
  Receive Date: 20040521
  Receipt Date: 20040427
  Transmission Date: 20050107
  Serious: Yes (Death, Hospitalization)
  Sender: FDA-Public Use
  Company Number: JP_040402949

PATIENT
  Age: 76 Year
  Sex: Male

DRUGS (6)
  1. GEMZAR [Suspect]
     Indication: PANCREATIC CARCINOMA
     Dosage: 1400 MG OTHER
     Dates: start: 20040101, end: 20040317
  2. LOXONIN (LOXOPROFEN SODIUM) [Concomitant]
  3. SELBEX (TEPRENONE) [Concomitant]
  4. CYTOTEC [Concomitant]
  5. MAGNESIUM OXIDE [Concomitant]
  6. MOBIC [Concomitant]

REACTIONS (8)
  - ASTHENIA [None]
  - MALIGNANT NEOPLASM PROGRESSION [None]
  - PANCREATIC CARCINOMA STAGE IV [None]
  - PNEUMOCYSTIS CARINII PNEUMONIA [None]
  - PNEUMONIA VIRAL [None]
  - PNEUMONITIS [None]
  - PYREXIA [None]
  - RESPIRATORY FAILURE [None]
